FAERS Safety Report 7678270-6 (Version None)
Quarter: 2011Q3

REPORT INFORMATION
  Report Type: 
  Country: None (occurrence: None)
  Receive Date: 20110811
  Receipt Date: 20110801
  Transmission Date: 20111222
  Serious: Yes (Hospitalization, Other)
  Sender: FDA-Public Use
  Company Number: US-JNJFOC-20110602112

PATIENT
  Sex: Male
  Weight: 57.8 kg

DRUGS (5)
  1. INFLIXIMAB, RECOMBINANT [Suspect]
     Indication: INFLAMMATORY BOWEL DISEASE
     Dosage: TOTAL 7 INFUSIONS
     Route: 042
     Dates: start: 20110305
  2. METRONIDAZOLE [Concomitant]
     Route: 065
  3. CIPROFLOXACIN [Concomitant]
     Route: 065
  4. INFLIXIMAB, RECOMBINANT [Suspect]
     Route: 042
     Dates: start: 20100606
  5. MESALAMINE [Concomitant]
     Route: 065

REACTIONS (5)
  - MALNUTRITION [None]
  - VOMITING [None]
  - HAEMORRHAGE [None]
  - NAUSEA [None]
  - RECTAL ABSCESS [None]
